FAERS Safety Report 9790572 (Version 2)
Quarter: 2013Q4

REPORT INFORMATION
  Report Type: Spontaneous
  Country: US (occurrence: US)
  Receive Date: 20131231
  Receipt Date: 20131231
  Transmission Date: 20140711
  Serious: Yes (Other)
  Sender: FDA-Public Use
  Company Number: US-JNJFOC-20131016429

PATIENT
  Age: 76 Year
  Sex: Female
  Weight: 95.71 kg

DRUGS (21)
  1. XARELTO [Suspect]
     Indication: CEREBROVASCULAR ACCIDENT PROPHYLAXIS
     Route: 048
     Dates: start: 20131003
  2. XARELTO [Suspect]
     Indication: CEREBROVASCULAR ACCIDENT PROPHYLAXIS
     Route: 048
     Dates: start: 20131005
  3. XARELTO [Suspect]
     Indication: CEREBROVASCULAR ACCIDENT PROPHYLAXIS
     Route: 048
     Dates: start: 2013, end: 20131003
  4. XARELTO [Suspect]
     Indication: ATRIAL FIBRILLATION
     Route: 048
     Dates: start: 20131005
  5. XARELTO [Suspect]
     Indication: ATRIAL FIBRILLATION
     Route: 048
     Dates: start: 20131003
  6. XARELTO [Suspect]
     Indication: ATRIAL FIBRILLATION
     Route: 048
     Dates: start: 2013, end: 20131003
  7. TRIAMTERENE/HCTZ [Concomitant]
     Indication: BLOOD PRESSURE
     Dosage: 37.5/25
     Route: 048
  8. ATENOLOL [Concomitant]
     Indication: TREMOR
     Dosage: 10 YEARS AGO
     Route: 048
  9. ATENOLOL [Concomitant]
     Indication: TREMOR
     Route: 048
  10. ATENOLOL [Concomitant]
     Indication: TREMOR
     Route: 048
  11. ATENOLOL [Concomitant]
     Indication: BLOOD PRESSURE
     Route: 048
  12. ATENOLOL [Concomitant]
     Indication: BLOOD PRESSURE
     Dosage: 10 YEARS AGO
     Route: 048
  13. ATENOLOL [Concomitant]
     Indication: BLOOD PRESSURE
     Route: 048
  14. ALLOPURINOL [Concomitant]
     Indication: GOUT
     Dosage: 10 YEARS AGO
     Route: 048
  15. CRESTOR [Concomitant]
     Indication: BLOOD CHOLESTEROL
     Route: 048
     Dates: start: 2013
  16. TRAZODONE [Concomitant]
     Indication: SLEEP DISORDER
     Dosage: AT BED TIME
     Route: 048
  17. VITAMIN D [Concomitant]
     Dosage: 50000 UNITS
     Route: 065
  18. EDARBI [Concomitant]
     Route: 065
  19. ALPRAZOLAM [Concomitant]
     Route: 065
  20. IRBESARTAN [Concomitant]
     Route: 065
  21. ATORVASTATIN [Concomitant]
     Route: 048

REACTIONS (6)
  - Epistaxis [Recovered/Resolved]
  - Creatinine renal clearance decreased [Unknown]
  - Inappropriate schedule of drug administration [Unknown]
  - Dizziness [Not Recovered/Not Resolved]
  - Drug administration error [Unknown]
  - Incorrect dose administered [Unknown]
